FAERS Safety Report 24569568 (Version 1)
Quarter: 2024Q4

REPORT INFORMATION
  Report Type: Spontaneous
  Country: US (occurrence: US)
  Receive Date: 20241031
  Receipt Date: 20241031
  Transmission Date: 20250115
  Serious: Yes (Death)
  Sender: CSL BEHRING
  Company Number: US-BEH-2024183423

PATIENT
  Age: 77 Year
  Sex: Male

DRUGS (1)
  1. HIZENTRA [Suspect]
     Active Substance: HUMAN IMMUNOGLOBULIN G
     Indication: Primary immunodeficiency syndrome
     Dosage: 8 G, QW
     Route: 058
     Dates: start: 201610

REACTIONS (1)
  - Death [Fatal]

NARRATIVE: CASE EVENT DATE: 20241026
